FAERS Safety Report 23253164 (Version 1)
Quarter: 2023Q4

REPORT INFORMATION
  Report Type: Other
  Country: CN (occurrence: None)
  Receive Date: 20231202
  Receipt Date: 20231202
  Transmission Date: 20240109
  Serious: Yes (Death)
  Sender: FDA-Public Use
  Company Number: CN-ROCHE-3466342

PATIENT
  Age: 71 Year
  Sex: Male

DRUGS (2)
  1. BEVACIZUMAB [Suspect]
     Active Substance: BEVACIZUMAB
     Indication: Follicular dendritic cell sarcoma
     Route: 034
  2. ENTECAVIR [Concomitant]
     Active Substance: ENTECAVIR

REACTIONS (2)
  - Disease progression [Fatal]
  - Off label use [Unknown]
